FAERS Safety Report 5222487-7 (Version None)
Quarter: 2007Q1

REPORT INFORMATION
  Report Type: 
  Country: None (occurrence: None)
  Receive Date: 20070129
  Receipt Date: 20060802
  Transmission Date: 20070707
  Serious: No
  Sender: FDA-Public Use
  Company Number: US-BRISTOL-MYERS SQUIBB COMPANY-13464011

PATIENT
  Age: 77 Year
  Sex: Female

DRUGS (3)
  1. CARDIOLITE FOR INJ [Suspect]
  2. FUROSEMIDE [Concomitant]
  3. LOVASTATIN [Concomitant]

REACTIONS (1)
  - RASH ERYTHEMATOUS [None]
